FAERS Safety Report 19998003 (Version 22)
Quarter: 2022Q2

REPORT INFORMATION
  Report Type: Report from Study
  Country: MX (occurrence: MX)
  Receive Date: 20211026
  Receipt Date: 20220627
  Transmission Date: 20220721
  Serious: Yes (Other)
  Sender: FDA-Public Use
  Company Number: MX-BOEHRINGERINGELHEIM-2021-BI-133206

PATIENT
  Age: 72 Year
  Sex: Male
  Weight: 70.5 kg

DRUGS (13)
  1. OFEV [Suspect]
     Active Substance: NINTEDANIB
     Indication: Idiopathic pulmonary fibrosis
     Route: 048
     Dates: start: 20210826, end: 20220507
  2. OFEV [Suspect]
     Active Substance: NINTEDANIB
     Dates: start: 20220606, end: 20220607
  3. OFEV [Suspect]
     Active Substance: NINTEDANIB
     Route: 048
     Dates: start: 20220507, end: 20220511
  4. OFEV [Suspect]
     Active Substance: NINTEDANIB
     Route: 048
     Dates: start: 20220511, end: 20220622
  5. OFEV [Suspect]
     Active Substance: NINTEDANIB
     Dosage: DRUG WITHDRAWN FOR 3 DAYS
     Route: 048
     Dates: start: 20220113, end: 20220115
  6. OFEV [Suspect]
     Active Substance: NINTEDANIB
     Route: 048
     Dates: end: 20211226
  7. OFEV [Suspect]
     Active Substance: NINTEDANIB
     Route: 048
     Dates: start: 20211228
  8. OFEV [Suspect]
     Active Substance: NINTEDANIB
     Route: 048
     Dates: start: 202110
  9. OFEV [Suspect]
     Active Substance: NINTEDANIB
     Route: 048
     Dates: start: 20220116
  10. OFEV [Suspect]
     Active Substance: NINTEDANIB
     Route: 048
     Dates: start: 20210826, end: 20220413
  11. OFEV [Suspect]
     Active Substance: NINTEDANIB
     Dates: start: 20220418
  12. OFEV [Suspect]
     Active Substance: NINTEDANIB
     Route: 048
     Dates: start: 20210826
  13. METFORMIN [Suspect]
     Active Substance: METFORMIN HYDROCHLORIDE
     Indication: Diabetes mellitus management

REACTIONS (46)
  - Diarrhoea [Recovered/Resolved]
  - Nausea [Recovered/Resolved]
  - Pain in extremity [Not Recovered/Not Resolved]
  - Gastric disorder [Not Recovered/Not Resolved]
  - Constipation [Not Recovered/Not Resolved]
  - Vomiting [Not Recovered/Not Resolved]
  - Illness [Recovering/Resolving]
  - Gastric disorder [Recovering/Resolving]
  - Speech disorder [Not Recovered/Not Resolved]
  - Weight decreased [Recovered/Resolved]
  - Constipation [Recovering/Resolving]
  - Nausea [Recovered/Resolved]
  - Headache [Recovered/Resolved]
  - Flatulence [Unknown]
  - Diarrhoea [Recovered/Resolved]
  - Diarrhoea [Unknown]
  - Fatigue [Unknown]
  - Depression [Unknown]
  - Diarrhoea [Recovered/Resolved]
  - Flatulence [Recovered/Resolved]
  - Dyspnoea [Not Recovered/Not Resolved]
  - Decreased appetite [Not Recovered/Not Resolved]
  - Fatigue [Unknown]
  - Insomnia [Unknown]
  - Nausea [Not Recovered/Not Resolved]
  - Weight decreased [Unknown]
  - Depressed mood [Unknown]
  - Musculoskeletal disorder [Not Recovered/Not Resolved]
  - Decreased appetite [Recovered/Resolved]
  - Musculoskeletal disorder [Unknown]
  - Sputum discoloured [Not Recovered/Not Resolved]
  - Asthenia [Recovered/Resolved]
  - Fatigue [Not Recovered/Not Resolved]
  - Cough [Not Recovered/Not Resolved]
  - Dizziness [Not Recovered/Not Resolved]
  - Dehydration [Recovering/Resolving]
  - Depressive symptom [Unknown]
  - General physical health deterioration [Unknown]
  - Increased viscosity of bronchial secretion [Not Recovered/Not Resolved]
  - Abnormal faeces [Recovering/Resolving]
  - Faeces discoloured [Recovering/Resolving]
  - Blood triglycerides increased [Unknown]
  - Pain [Recovering/Resolving]
  - Aphasia [Unknown]
  - Feeling abnormal [Unknown]
  - Frustration tolerance decreased [Unknown]

NARRATIVE: CASE EVENT DATE: 20210901
